FAERS Safety Report 15347770 (Version 1)
Quarter: 2018Q3

REPORT INFORMATION
  Report Type: Spontaneous
  Country: FR (occurrence: FR)
  Receive Date: 20180904
  Receipt Date: 20180904
  Transmission Date: 20181010
  Serious: Yes (Life-Threatening)
  Sender: FDA-Public Use
  Company Number: FR-PFIZER INC-2018353387

PATIENT
  Age: 25 Year
  Sex: Male

DRUGS (3)
  1. XANAX [Suspect]
     Active Substance: ALPRAZOLAM
     Indication: ANXIOLYTIC THERAPY
     Dosage: 30 MG, UNK
     Route: 048
     Dates: start: 20180707, end: 20180707
  2. METHADONE AP HP [Suspect]
     Active Substance: METHADONE HYDROCHLORIDE
     Indication: DRUG WITHDRAWAL MAINTENANCE THERAPY
     Dosage: 90 MG, SINGLE
     Route: 048
     Dates: start: 20180707, end: 20180707
  3. HEROIN [Suspect]
     Active Substance: DIAMORPHINE
     Dosage: 1.5 MG, UNK
     Route: 042

REACTIONS (3)
  - Overdose [Unknown]
  - Somnolence [Recovered/Resolved]
  - Bradypnoea [Recovered/Resolved]

NARRATIVE: CASE EVENT DATE: 20180707
